FAERS Safety Report 4390316-X (Version None)
Quarter: 2004Q2

REPORT INFORMATION
  Report Type: 
  Country: None (occurrence: None)
  Receive Date: 20040630
  Receipt Date: 20040618
  Transmission Date: 20050107
  Serious: Yes (Hospitalization)
  Sender: FDA-Public Use
  Company Number: STA-AE-04-MTX-274

PATIENT
  Age: 55 Year
  Sex: Male

DRUGS (7)
  1. METHOTREXATE [Suspect]
     Indication: RHEUMATOID ARTHRITIS
     Dosage: 7.5 MG, 1X PER 1 WK, ORAL
     Route: 048
     Dates: start: 20020327
  2. ENBREL [Suspect]
     Indication: RHEUMATOID ARTHRITIS
     Dosage: 25 MG 2X PER 1 WK, SC
     Route: 058
     Dates: start: 20030108
  3. SALSALATE (SALSALATE) [Concomitant]
  4. PREDNISONE TAB [Concomitant]
  5. AVANDIA [Concomitant]
  6. GLUCOPHAGE [Concomitant]
  7. ZESTRIL [Concomitant]

REACTIONS (7)
  - FEELING ABNORMAL [None]
  - HYPERHIDROSIS [None]
  - NAUSEA [None]
  - PLEURAL EFFUSION [None]
  - RESTRICTIVE PULMONARY DISEASE [None]
  - STRESS SYMPTOMS [None]
  - TACHYPNOEA [None]
